FAERS Safety Report 16459139 (Version 1)
Quarter: 2019Q2

REPORT INFORMATION
  Report Type: Spontaneous
  Country: FR (occurrence: FR)
  Receive Date: 20190620
  Receipt Date: 20190620
  Transmission Date: 20190711
  Serious: Yes (Other)
  Sender: FDA-Public Use
  Company Number: FR-MYLANLABS-2019M1057300

PATIENT
  Age: 24 Month
  Sex: Male

DRUGS (5)
  1. TACROLIMUS. [Suspect]
     Active Substance: TACROLIMUS
     Indication: IMMUNOSUPPRESSION
     Dosage: UNK
     Route: 065
  2. BASILIXIMAB [Suspect]
     Active Substance: BASILIXIMAB
     Indication: IMMUNOSUPPRESSION
     Dosage: UNK
     Route: 065
  3. MYCOPHENOLATE MOFETIL. [Suspect]
     Active Substance: MYCOPHENOLATE MOFETIL
     Indication: GRAFT VERSUS HOST DISEASE
     Dosage: UNK
     Route: 065
  4. ACICLOVIR [Concomitant]
     Active Substance: ACYCLOVIR
     Dosage: UNK
  5. METHYLPREDNISOLONE. [Suspect]
     Active Substance: METHYLPREDNISOLONE
     Indication: IMMUNOSUPPRESSION
     Dosage: UNK
     Route: 065

REACTIONS (12)
  - Epidermal necrosis [Recovered/Resolved]
  - Eosinophilia [Unknown]
  - Diarrhoea [Unknown]
  - Dermatitis [Recovered/Resolved]
  - Human herpesvirus 6 infection [Recovered/Resolved]
  - Skin exfoliation [Recovered/Resolved]
  - Graft versus host disease [Recovering/Resolving]
  - Condition aggravated [Recovering/Resolving]
  - Rash maculo-papular [Recovered/Resolved]
  - Biopsy skin abnormal [Recovered/Resolved]
  - Drug dependence [Unknown]
  - Drug ineffective [Unknown]
